FAERS Safety Report 18879846 (Version 1)
Quarter: 2021Q1

REPORT INFORMATION
  Report Type: Spontaneous
  Country: BR (occurrence: BR)
  Receive Date: 20210211
  Receipt Date: 20210211
  Transmission Date: 20210420
  Serious: No
  Sender: FDA-Public Use
  Company Number: BR-TOLMAR, INC.-21BR025274

PATIENT
  Age: 9 Year
  Sex: Female

DRUGS (1)
  1. ELIGARD [Suspect]
     Active Substance: LEUPROLIDE ACETATE
     Indication: PRECOCIOUS PUBERTY
     Dosage: 22.5 MG
     Route: 030

REACTIONS (3)
  - Product prescribing error [Unknown]
  - Incorrect route of product administration [Unknown]
  - Off label use [Unknown]
